FAERS Safety Report 17887593 (Version 1)
Quarter: 2020Q2

REPORT INFORMATION
  Report Type: Spontaneous
  Country: US (occurrence: US)
  Receive Date: 20200611
  Receipt Date: 20200611
  Transmission Date: 20200714
  Serious: No
  Sender: FDA-Public Use
  Company Number: US-BIOMARINAP-US-2020-130204

PATIENT
  Age: 10 Year
  Sex: Female
  Weight: 22.5 kg

DRUGS (1)
  1. VIMIZIM [Suspect]
     Active Substance: ELOSULFASE ALFA
     Indication: PRODUCT USED FOR UNKNOWN INDICATION
     Dosage: UNK, QW
     Route: 042
     Dates: start: 20191206

REACTIONS (2)
  - Pyrexia [Unknown]
  - Product dose omission [Unknown]

NARRATIVE: CASE EVENT DATE: 20200428
